FAERS Safety Report 6988360-9 (Version None)
Quarter: 2010Q3

REPORT INFORMATION
  Report Type: 
  Country: None (occurrence: None)
  Receive Date: 20100914
  Receipt Date: 20100908
  Transmission Date: 20110219
  Serious: Yes (Death, Hospitalization, Other)
  Sender: FDA-Public Use
  Company Number: 2010US003316

PATIENT
  Age: 53 Year
  Sex: Male

DRUGS (31)
  1. PROGRAF [Suspect]
     Indication: LUNG TRANSPLANT
     Dosage: 1 MG, BID, ORAL; 2.5 MG, BID, ORAL
     Route: 048
     Dates: start: 20080227
  2. CELLCEPT [Concomitant]
  3. PREDNISONE [Concomitant]
  4. BACTRIM DS [Concomitant]
  5. VALCYTE [Concomitant]
  6. ZITHROMAX [Concomitant]
  7. VFEND [Concomitant]
  8. ATROVENT [Concomitant]
  9. OXYGEN (OXYGEN) [Concomitant]
  10. ALBUTEROL [Concomitant]
  11. COUMADIN [Concomitant]
  12. BUMEX [Concomitant]
  13. COLACE (DOCUSATE SODIUM) [Concomitant]
  14. DURAGESIC-100 [Concomitant]
  15. FLONASE [Concomitant]
  16. INDERAL [Concomitant]
  17. KLONOPIN [Concomitant]
  18. LIDODERM [Concomitant]
  19. LORTAB [Concomitant]
  20. MIRALAX [Concomitant]
  21. MULTIVITAMIN [Concomitant]
  22. NOVOLOG [Concomitant]
  23. OCEAN NASAL (SODIUM CHLORIDE) [Concomitant]
  24. PAMELOR [Concomitant]
  25. PRILOSEC (OMEPRAZOLE) [Concomitant]
  26. REGLAN [Concomitant]
  27. RESTORIL [Concomitant]
  28. BUSPAR [Concomitant]
  29. CLEOCIN (CLINDAMYCIN HYDROCHLORIDE) [Concomitant]
  30. LASIX [Concomitant]
  31. MAXIPIME [Concomitant]

REACTIONS (11)
  - ARTHRITIS BACTERIAL [None]
  - DIAPHRAGMATIC PARALYSIS [None]
  - OBLITERATIVE BRONCHIOLITIS [None]
  - OSTEONECROSIS [None]
  - OSTEOPOROSIS [None]
  - PNEUMONITIS [None]
  - PSEUDOMONAS INFECTION [None]
  - RENAL FAILURE CHRONIC [None]
  - RESPIRATORY ACIDOSIS [None]
  - SEPSIS [None]
  - TRANSPLANT FAILURE [None]
